FAERS Safety Report 8911862 (Version 1)
Quarter: 2012Q4

REPORT INFORMATION
  Report Type: 
  Country: JP (occurrence: JP)
  Receive Date: 20121115
  Receipt Date: 20121115
  Transmission Date: 20130627
  Serious: Yes (Life-Threatening, Hospitalization)
  Sender: FDA-Public Use
  Company Number: JP-GLAXOSMITHKLINE-B0839816A

PATIENT
  Age: 69 Year
  Sex: Female

DRUGS (8)
  1. VALTREX [Suspect]
     Indication: HERPES ZOSTER
     Dosage: 1000MG Per day
     Route: 048
     Dates: start: 20121001, end: 20121007
  2. CEFZON [Suspect]
     Indication: PRODUCT USED FOR UNKNOWN INDICATION
     Dosage: 100MG Three times per day
     Route: 048
     Dates: start: 20121001, end: 20121007
  3. ADALAT-CR [Concomitant]
     Dosage: 40MG Per day
     Route: 048
  4. OLMETEC [Concomitant]
     Dosage: 40MG Per day
     Route: 048
  5. CARDENALIN [Concomitant]
     Dosage: 4MG Per day
     Route: 048
  6. DIART [Concomitant]
     Dosage: 120MG Per day
     Route: 048
  7. WYTENS [Concomitant]
     Dosage: 2MG Per day
     Route: 048
  8. UNKNOWN DRUG [Concomitant]
     Route: 065

REACTIONS (7)
  - Renal failure [Unknown]
  - Renal impairment [Unknown]
  - Hyperkalaemia [Recovered/Resolved]
  - Blood potassium increased [Recovered/Resolved]
  - Infection [Unknown]
  - Blood creatinine increased [Unknown]
  - Glomerular filtration rate decreased [Unknown]
